FAERS Safety Report 9308145 (Version 1)
Quarter: 2013Q2

REPORT INFORMATION
  Report Type: Spontaneous
  Country: US (occurrence: US)
  Receive Date: 20130524
  Receipt Date: 20130524
  Transmission Date: 20140414
  Serious: Yes (Other)
  Sender: FDA-Public Use
  Company Number: US-PFIZER INC-2013158775

PATIENT
  Age: 77 Year
  Sex: Female
  Weight: 51.25 kg

DRUGS (4)
  1. NIFEDIPINE [Suspect]
     Dosage: 60 MG, 1X/DAY
     Route: 048
  2. PLAVIX [Concomitant]
     Indication: COAGULOPATHY
     Dosage: UNK
  3. CRESTOR [Concomitant]
     Indication: BLOOD CHOLESTEROL INCREASED
     Dosage: UNK
  4. HYDROCHLOROTHIAZIDE [Concomitant]
     Dosage: 25 MG, 1X/DAY

REACTIONS (1)
  - Coeliac disease [Unknown]
